FAERS Safety Report 6813243-4 (Version None)
Quarter: 2010Q3

REPORT INFORMATION
  Report Type: 
  Country: None (occurrence: None)
  Receive Date: 20100701
  Receipt Date: 20100617
  Transmission Date: 20110219
  Serious: Yes (Other)
  Sender: FDA-Public Use
  Company Number: US-SHIRE-SPV1-2010-01131

PATIENT

DRUGS (2)
  1. INTUNIV [Suspect]
     Indication: PRODUCT USED FOR UNKNOWN INDICATION
     Dosage: 1 MG, 1X/DAY:QD
     Route: 048
     Dates: start: 20100528
  2. INTUNIV [Suspect]
     Dosage: 1 DF, 1X/DAY:QD
     Route: 048
     Dates: start: 20100101

REACTIONS (3)
  - FALL [None]
  - OFF LABEL USE [None]
  - SYNCOPE [None]
